FAERS Safety Report 8828908 (Version 1)
Quarter: 2012Q4

REPORT INFORMATION
  Report Type: 
  Country: US (occurrence: US)
  Receive Date: 20121008
  Receipt Date: 20121008
  Transmission Date: 20130627
  Serious: Yes (Death, Hospitalization, Other)
  Sender: FDA-Public Use
  Company Number: US-ROCHE-1130697

PATIENT
  Sex: Female

DRUGS (5)
  1. RITUXAN [Suspect]
     Indication: WALDENSTROM^S MACROGLOBULINAEMIA
     Route: 065
  2. RITUXAN [Suspect]
     Indication: OFF LABEL USE
     Route: 065
  3. CHLORAMBUCIL [Suspect]
     Indication: PRODUCT USED FOR UNKNOWN INDICATION
  4. FLUDARABINE [Suspect]
     Indication: PRODUCT USED FOR UNKNOWN INDICATION
  5. DEXAMETHASONE [Concomitant]

REACTIONS (5)
  - Death [Fatal]
  - Pneumonia [Unknown]
  - Acute myeloid leukaemia [Unknown]
  - Haematoma [Unknown]
  - Thrombocytopenia [Unknown]
